FAERS Safety Report 4536913-X (Version None)
Quarter: 2004Q4

REPORT INFORMATION
  Report Type: 
  Country: None (occurrence: None)
  Receive Date: 20041223
  Receipt Date: 20041214
  Transmission Date: 20050328
  Serious: Yes (Hospitalization)
  Sender: FDA-Public Use
  Company Number: CH-GLAXOSMITHKLINE-B0362630A

PATIENT
  Age: 75 Year
  Sex: Male

DRUGS (2)
  1. AUGMENTIN '125' [Suspect]
     Indication: PNEUMONIA
     Route: 048
     Dates: start: 20041101, end: 20041101
  2. KLACID [Suspect]
     Indication: PNEUMONIA
     Route: 048
     Dates: start: 20041101, end: 20041101

REACTIONS (7)
  - INFECTION [None]
  - PNEUMONIA [None]
  - PSORIASIS [None]
  - RASH PAPULAR [None]
  - RASH PUSTULAR [None]
  - SKIN DISCOLOURATION [None]
  - TOXIC SKIN ERUPTION [None]
